FAERS Safety Report 4987117-8 (Version None)
Quarter: 2006Q2

REPORT INFORMATION
  Report Type: 
  Country: None (occurrence: None)
  Receive Date: 20060501
  Receipt Date: 20060419
  Transmission Date: 20061013
  Serious: Yes (Hospitalization)
  Sender: FDA-Public Use
  Company Number: 2006AP01805

PATIENT
  Age: 31313 Day
  Sex: Female
  Weight: 86 kg

DRUGS (10)
  1. SEROQUEL [Suspect]
     Indication: PSYCHOTIC DISORDER
     Route: 048
     Dates: start: 20050812, end: 20051212
  2. OMEPRAZOLE [Concomitant]
     Indication: AGRANULOCYTOSIS
  3. DONEPEZIL HYDROCHLORIDE [Concomitant]
  4. DILTIAZEM HYDROCHLORIDE [Concomitant]
  5. LERCANIDIPINE HYDROCHLORIDE [Concomitant]
  6. ALENDRONATE SODIUM [Concomitant]
  7. CALTRATE [Concomitant]
  8. OSTELIN 1000 [Concomitant]
  9. SERETIDE ACCUHALER NOS [Concomitant]
  10. SPIRIVA [Concomitant]

REACTIONS (2)
  - NEUTROPHIL COUNT DECREASED [None]
  - WHITE BLOOD CELL COUNT DECREASED [None]
